FAERS Safety Report 12474269 (Version 2)
Quarter: 2020Q3

REPORT INFORMATION
  Report Type: Report from Study
  Country: TR (occurrence: TR)
  Receive Date: 20160617
  Receipt Date: 20160811
  Transmission Date: 20201104
  Serious: Yes (Death, Hospitalization, Other)
  Sender: FDA-Public Use
  Company Number: TR-TEVA-668756ACC

PATIENT
  Age: 56 Year
  Sex: Male

DRUGS (22)
  1. BENDAMUSTINE HYDROCHLORIDE. [Suspect]
     Active Substance: BENDAMUSTINE HYDROCHLORIDE
     Indication: DIFFUSE LARGE B-CELL LYMPHOMA
     Route: 042
     Dates: start: 20160525
  2. POLATUZUMAB VEDOTIN. [Suspect]
     Active Substance: POLATUZUMAB VEDOTIN
     Indication: DIFFUSE LARGE B-CELL LYMPHOMA
     Dosage: (1 IN 21 DAYS)
     Route: 042
     Dates: start: 20160525
  3. EMETRIL [Concomitant]
     Route: 065
     Dates: start: 20160526, end: 20160526
  4. TAMOL                              /00020001/ [Concomitant]
     Route: 065
     Dates: start: 20160525, end: 20160525
  5. AVIL                               /00085102/ [Concomitant]
     Route: 065
     Dates: start: 20160525, end: 20160525
  6. RANITAB                            /00550801/ [Concomitant]
     Route: 065
     Dates: start: 20160525, end: 20160525
  7. DORMICUM                           /00036201/ [Concomitant]
     Active Substance: NITRAZEPAM
     Indication: PRODUCT USED FOR UNKNOWN INDICATION
     Route: 065
  8. DEKORT                             /00016001/ [Concomitant]
     Indication: PROPHYLAXIS
     Route: 065
     Dates: start: 20160524, end: 20160524
  9. EMETRIL [Concomitant]
     Indication: PROPHYLAXIS
     Route: 065
     Dates: start: 20160524, end: 20160524
  10. TAMOL                              /00020001/ [Concomitant]
     Indication: PROPHYLAXIS
     Route: 065
     Dates: start: 20160524, end: 20160524
  11. METFORMIN HYDROCHLORIDE. [Concomitant]
     Active Substance: METFORMIN HYDROCHLORIDE
     Indication: DIABETES MELLITUS
     Route: 065
     Dates: start: 2012
  12. FOLIC ACID. [Concomitant]
     Active Substance: FOLIC ACID
     Indication: PROPHYLAXIS
     Route: 065
     Dates: start: 201603
  13. ALLOPURINOL. [Concomitant]
     Active Substance: ALLOPURINOL
     Indication: PROPHYLAXIS
     Route: 065
     Dates: start: 20160523, end: 20160526
  14. AVIL                               /00085102/ [Concomitant]
     Indication: PROPHYLAXIS
     Route: 065
     Dates: start: 20160524, end: 20160524
  15. DEKORT                             /00016001/ [Concomitant]
     Route: 065
     Dates: start: 20160526, end: 20160526
  16. RANITAB                            /00550801/ [Concomitant]
     Indication: PROPHYLAXIS
     Route: 065
     Dates: start: 20160524, end: 20160524
  17. RITUXIMAB. [Suspect]
     Active Substance: RITUXIMAB
     Indication: DIFFUSE LARGE B-CELL LYMPHOMA
     Dosage: (1 IN 21 DAYS)
     Route: 042
     Dates: start: 20160524
  18. AVIL                               /00085102/ [Concomitant]
     Route: 065
     Dates: start: 20160526, end: 20160526
  19. DEKORT                             /00016001/ [Concomitant]
     Route: 065
     Dates: start: 20160525, end: 20160525
  20. EMETRIL [Concomitant]
     Route: 065
     Dates: start: 20160525, end: 20160525
  21. RANITAB                            /00550801/ [Concomitant]
     Route: 065
     Dates: start: 20160526, end: 20160526
  22. TAMOL                              /00020001/ [Concomitant]
     Route: 065
     Dates: start: 20160526, end: 20160526

REACTIONS (5)
  - Pulmonary oedema [Fatal]
  - Cardiac arrest [Unknown]
  - General physical health deterioration [Unknown]
  - Off label use [Unknown]
  - Streptococcus test positive [Unknown]

NARRATIVE: CASE EVENT DATE: 20160603
